FAERS Safety Report 9520457 (Version 1)
Quarter: 2013Q3

REPORT INFORMATION
  Report Type: Report from Study
  Country: US (occurrence: US)
  Receive Date: 20130912
  Receipt Date: 20130912
  Transmission Date: 20140515
  Serious: Yes (Hospitalization)
  Sender: FDA-Public Use
  Company Number: PHEH2011US013399

PATIENT
  Age: 85 Year
  Sex: Male

DRUGS (1)
  1. TOBI [Suspect]
     Indication: OBSTRUCTIVE AIRWAYS DISORDER
     Dosage: 1 DF, (300 MG /5 ML, BID)
     Dates: start: 20110919, end: 20111017

REACTIONS (1)
  - Infection [Not Recovered/Not Resolved]
